FAERS Safety Report 8570758-9 (Version None)
Quarter: 2012Q3

REPORT INFORMATION
  Report Type: 
  Country: None (occurrence: None)
  Receive Date: 20120805
  Receipt Date: 20120718
  Transmission Date: 20120928
  Serious: No
  Sender: FDA-Public Use
  Company Number: US-009507513-1207USA007600

PATIENT

DRUGS (1)
  1. TIMOPTIC [Suspect]
     Dosage: 2 DROPS, QD
     Route: 047

REACTIONS (3)
  - CHEST DISCOMFORT [None]
  - DRUG HYPERSENSITIVITY [None]
  - MOOD ALTERED [None]
